FAERS Safety Report 21795923 (Version 1)
Quarter: 2022Q4

REPORT INFORMATION
  Report Type: Spontaneous
  Country: CA (occurrence: CA)
  Receive Date: 20221229
  Receipt Date: 20221229
  Transmission Date: 20230112
  Serious: Yes (Other)
  Sender: FDA-Public Use
  Company Number: CA-BAUSCH-BL-2022-028136

PATIENT
  Age: 67 Year
  Sex: Male

DRUGS (17)
  1. BUDESONIDE [Suspect]
     Active Substance: BUDESONIDE
     Indication: Product used for unknown indication
     Route: 065
  2. AZELASTINE HYDROCHLORIDE [Suspect]
     Active Substance: AZELASTINE HYDROCHLORIDE
     Indication: Product used for unknown indication
     Route: 065
  3. BREO ELLIPTA [Suspect]
     Active Substance: FLUTICASONE FUROATE\VILANTEROL TRIFENATATE
     Indication: Product used for unknown indication
     Route: 065
  4. FLUTICASONE [Suspect]
     Active Substance: FLUTICASONE
     Indication: Product used for unknown indication
     Route: 065
  5. GLYCOPYRROLATE [Suspect]
     Active Substance: GLYCOPYRROLATE
     Indication: Product used for unknown indication
     Route: 065
  6. GLYCOPYRROLATE [Suspect]
     Active Substance: GLYCOPYRROLATE
     Route: 065
  7. ALBUTEROL\IPRATROPIUM [Suspect]
     Active Substance: ALBUTEROL\IPRATROPIUM
     Indication: Product used for unknown indication
     Route: 065
  8. LEVOFLOXACIN [Suspect]
     Active Substance: LEVOFLOXACIN
     Indication: Product used for unknown indication
     Route: 065
  9. MEPOLIZUMAB [Suspect]
     Active Substance: MEPOLIZUMAB
     Indication: Product used for unknown indication
     Route: 065
  10. PREDNISONE [Suspect]
     Active Substance: PREDNISONE
     Indication: Product used for unknown indication
     Route: 048
  11. PREDNISONE [Suspect]
     Active Substance: PREDNISONE
     Route: 065
  12. PREDNISONE [Suspect]
     Active Substance: PREDNISONE
     Route: 065
  13. PREDNISONE [Suspect]
     Active Substance: PREDNISONE
     Route: 065
  14. SINGULAIR [Suspect]
     Active Substance: MONTELUKAST SODIUM
     Indication: Product used for unknown indication
     Route: 065
  15. TIOTROPIUM BROMIDE MONOHYDRATE [Suspect]
     Active Substance: TIOTROPIUM BROMIDE MONOHYDRATE
     Indication: Product used for unknown indication
     Route: 065
  16. PULMICORT TURBUHALER [Suspect]
     Active Substance: BUDESONIDE
     Indication: Product used for unknown indication
     Route: 055
  17. AMOXICILLIN\CLAVULANATE POTASSIUM [Concomitant]
     Active Substance: AMOXICILLIN\CLAVULANATE POTASSIUM
     Indication: Product used for unknown indication
     Route: 065

REACTIONS (24)
  - Aphonia [Unknown]
  - Asthenia [Unknown]
  - Asthma [Unknown]
  - Chest discomfort [Unknown]
  - Chills [Unknown]
  - Chronic sinusitis [Unknown]
  - Disease progression [Unknown]
  - Dry skin [Unknown]
  - Dyspnoea [Unknown]
  - Dyspnoea exertional [Unknown]
  - Emphysema [Unknown]
  - Hiatus hernia [Unknown]
  - Infection [Unknown]
  - Loss of personal independence in daily activities [Unknown]
  - Pneumonia [Unknown]
  - Precancerous condition [Unknown]
  - Productive cough [Unknown]
  - Prolonged expiration [Unknown]
  - Pulmonary mass [Unknown]
  - Pyrexia [Unknown]
  - Respiratory disorder [Unknown]
  - Sputum discoloured [Unknown]
  - Sputum purulent [Unknown]
  - Fatigue [Unknown]
